FAERS Safety Report 18381394 (Version 1)
Quarter: 2020Q4

REPORT INFORMATION
  Report Type: Spontaneous
  Country: US (occurrence: US)
  Receive Date: 20201013
  Receipt Date: 20201013
  Transmission Date: 20210114
  Serious: No
  Sender: FDA-Public Use
  Company Number: None

PATIENT
  Age: 48 Year
  Sex: Male

DRUGS (1)
  1. ROBO COUGH [Suspect]
     Active Substance: DEXTROMETHORPHAN HYDROBROMIDE
     Indication: COUGH
     Route: 048
     Dates: start: 20201010, end: 20201010

REACTIONS (4)
  - Hyperhidrosis [None]
  - Nausea [None]
  - Expired product administered [None]
  - Pruritus [None]

NARRATIVE: CASE EVENT DATE: 20201010
